FAERS Safety Report 20512202 (Version 1)
Quarter: 2022Q1

REPORT INFORMATION
  Report Type: Spontaneous
  Country: US (occurrence: US)
  Receive Date: 20220224
  Receipt Date: 20220224
  Transmission Date: 20220423
  Serious: Yes (Death, Other)
  Sender: FDA-Public Use
  Company Number: US-SA-SAC20220223001181

PATIENT
  Age: 53 Year
  Sex: Male

DRUGS (3)
  1. ZANTAC [Suspect]
     Active Substance: RANITIDINE HYDROCHLORIDE
     Indication: Dyspepsia
     Dosage: 300 MG, QD
     Dates: start: 200011, end: 200605
  2. ZANTAC [Suspect]
     Active Substance: RANITIDINE HYDROCHLORIDE
     Indication: Erosive oesophagitis
  3. ZANTAC [Suspect]
     Active Substance: RANITIDINE HYDROCHLORIDE
     Indication: Abdominal discomfort

REACTIONS (5)
  - Gastrointestinal carcinoma [Fatal]
  - Hepatic cancer stage III [Fatal]
  - Lung carcinoma cell type unspecified stage IV [Fatal]
  - Gastric cancer stage I [Fatal]
  - Brain neoplasm malignant [Fatal]

NARRATIVE: CASE EVENT DATE: 20060401
